FAERS Safety Report 5827586-4 (Version None)
Quarter: 2008Q3

REPORT INFORMATION
  Report Type: 
  Country: None (occurrence: None)
  Receive Date: 20080730
  Receipt Date: 20080729
  Transmission Date: 20090109
  Serious: Yes (Other)
  Sender: FDA-Public Use
  Company Number: DE-BOEHRINGER INGELHEIM GMBH, GERMANY-2008-DE-04453DE

PATIENT
  Sex: Male
  Weight: 80 kg

DRUGS (1)
  1. MICARDIS HCT [Suspect]
     Route: 048

REACTIONS (5)
  - DRUG ABUSE [None]
  - FATIGUE [None]
  - OVERDOSE [None]
  - POLYURIA [None]
  - SUICIDE ATTEMPT [None]
